FAERS Safety Report 25897424 (Version 1)
Quarter: 2025Q4

REPORT INFORMATION
  Report Type: Spontaneous
  Country: CN (occurrence: CN)
  Receive Date: 20251008
  Receipt Date: 20251008
  Transmission Date: 20260117
  Serious: Yes (Hospitalization)
  Sender: JOHNSON AND JOHNSON
  Company Number: CN-JNJFOC-20250946069

PATIENT
  Age: 67 Year
  Sex: Male
  Weight: 70 kg

DRUGS (6)
  1. DARZALEX FASPRO [Suspect]
     Active Substance: DARATUMUMAB\HYALURONIDASE-FIHJ
     Indication: Primary amyloidosis
     Dosage: D1, D8, D15, D24
     Route: 058
     Dates: start: 20250822, end: 20250829
  2. DARZALEX FASPRO [Suspect]
     Active Substance: DARATUMUMAB\HYALURONIDASE-FIHJ
     Indication: Plasma cell myeloma
  3. BORTEZOMIB [Suspect]
     Active Substance: BORTEZOMIB
     Indication: Plasma cell myeloma
     Dosage: D1, D8, D15, D24
     Dates: start: 20250829, end: 20250829
  4. BORTEZOMIB [Suspect]
     Active Substance: BORTEZOMIB
     Dosage: D1, D8, D15, D24
     Dates: start: 20250819, end: 20250819
  5. DEXAMETHASONE [Suspect]
     Active Substance: DEXAMETHASONE
     Indication: Plasma cell myeloma
     Dosage: D1-2, D8-11, D15-18, D22-25
  6. POTASSIUM CHLORIDE [Concomitant]
     Active Substance: POTASSIUM CHLORIDE
     Indication: Product used for unknown indication

REACTIONS (3)
  - Visual acuity reduced [Recovering/Resolving]
  - Infusion related reaction [Recovering/Resolving]
  - Renal amyloidosis [Recovering/Resolving]

NARRATIVE: CASE EVENT DATE: 20250823
